FAERS Safety Report 20735425 (Version 1)
Quarter: 2022Q2

REPORT INFORMATION
  Report Type: Spontaneous
  Country: US (occurrence: None)
  Receive Date: 20220421
  Receipt Date: 20220421
  Transmission Date: 20220720
  Serious: Yes (Other)
  Sender: FDA-Public Use
  Company Number: None

PATIENT
  Age: 35 Year
  Sex: Female
  Weight: 95.4 kg

DRUGS (10)
  1. KETOCONAZOLE [Suspect]
     Active Substance: KETOCONAZOLE
     Indication: Pituitary-dependent Cushing^s syndrome
     Dosage: OTHER QUANTITY : 3 TABLET(S);?OTHER FREQUENCY : 2 TABS @ 8 + 10PM;?
     Route: 048
     Dates: start: 20220415, end: 20220421
  2. VENLAFAXINE [Concomitant]
     Active Substance: VENLAFAXINE HYDROCHLORIDE
  3. TRIAMCINOLONE [Concomitant]
     Active Substance: TRIAMCINOLONE
  4. IRON [Concomitant]
     Active Substance: IRON
  5. VITAMIN C [Concomitant]
     Active Substance: ASCORBIC ACID
  6. VITAMIN D [Concomitant]
     Active Substance: VITAMIN D NOS
  7. VITAMIN B COMPLEX [Concomitant]
     Active Substance: CYANOCOBALAMIN\DEXPANTHENOL\NIACINAMIDE\PYRIDOXINE HYDROCHLORIDE\RIBOFLAVIN 5^-PHOSPHATE SODIUM\THIA
  8. VITAMIN E [Concomitant]
     Active Substance: .ALPHA.-TOCOPHEROL
  9. HYDROCORTISONE [Concomitant]
     Active Substance: HYDROCORTISONE
  10. ANTI ITCH TOPICAL [Concomitant]

REACTIONS (3)
  - Product substitution issue [None]
  - Hypersensitivity [None]
  - Feeling abnormal [None]

NARRATIVE: CASE EVENT DATE: 20220415
